FAERS Safety Report 4589536-0 (Version None)
Quarter: 2005Q1

REPORT INFORMATION
  Report Type: 
  Country: None (occurrence: None)
  Receive Date: 20050216
  Receipt Date: 20041216
  Transmission Date: 20050727
  Serious: Yes (Hospitalization)
  Sender: FDA-Public Use
  Company Number: 2004118279

PATIENT
  Age: 70 Year
  Sex: Male

DRUGS (3)
  1. CELEBREX [Suspect]
     Indication: PAIN IN EXTREMITY
     Dosage: 400 MG (200 MG, 1 IN 2 D), ORAL
     Route: 048
     Dates: start: 20041101, end: 20041110
  2. REBIF [Suspect]
     Indication: MYELITIS
     Dosage: 1 IN 3 WK, SUBCUTANEOUS
     Route: 058
     Dates: start: 20040901
  3. NEXIUM [Suspect]
     Indication: GASTRIC ULCER
     Dosage: 20 MG (20 MG, 1 IN 1 D), ORAL
     Route: 048
     Dates: end: 20041110

REACTIONS (4)
  - BLOOD POTASSIUM INCREASED [None]
  - FALL [None]
  - INAPPROPRIATE ANTIDIURETIC HORMONE SECRETION [None]
  - PAIN IN EXTREMITY [None]
